FAERS Safety Report 21335755 (Version 1)
Quarter: 2022Q3

REPORT INFORMATION
  Report Type: Spontaneous
  Country: US (occurrence: None)
  Receive Date: 20220915
  Receipt Date: 20220915
  Transmission Date: 20221027
  Serious: Yes (Death)
  Sender: FDA-Public Use
  Company Number: US-FARMAPROD-202209-1715

PATIENT
  Age: 62 Year
  Sex: Female
  Weight: 44.719 kg

DRUGS (8)
  1. OXERVATE [Suspect]
     Active Substance: CENEGERMIN-BKBJ
     Indication: Neurotrophic keratopathy
     Route: 047
     Dates: start: 20220806
  2. DEXAMETHASONE [Concomitant]
     Active Substance: DEXAMETHASONE
     Dosage: 0.5 MG/5 ML
  3. NARCAN [Concomitant]
     Active Substance: NALOXONE HYDROCHLORIDE
  4. ACETAMINOPHEN [Concomitant]
     Active Substance: ACETAMINOPHEN
     Dosage: 160 MG/5 ML LIQUID
  5. POLYETHYLENE GLYCOL 3350 [Concomitant]
     Active Substance: POLYETHYLENE GLYCOL 3350
     Dosage: PACK
  6. ACETAMINOPHEN\HYDROCODONE [Concomitant]
     Active Substance: ACETAMINOPHEN\HYDROCODONE
  7. MARINOL [Concomitant]
     Active Substance: DRONABINOL
  8. ERYTHROMYCIN [Concomitant]
     Active Substance: ERYTHROMYCIN

REACTIONS (1)
  - Death [Fatal]

NARRATIVE: CASE EVENT DATE: 20220901
